FAERS Safety Report 15083771 (Version 2)
Quarter: 2018Q3

REPORT INFORMATION
  Report Type: Spontaneous
  Country: BR (occurrence: BR)
  Receive Date: 20180628
  Receipt Date: 20180727
  Transmission Date: 20181010
  Serious: Yes (Death, Life-Threatening, Other)
  Sender: FDA-Public Use
  Company Number: BR-INCYTE CORPORATION-2018IN005998

PATIENT

DRUGS (2)
  1. JAKAVI [Suspect]
     Active Substance: RUXOLITINIB
     Indication: PRIMARY MYELOFIBROSIS
     Dosage: 50 MG, QD
     Route: 065
     Dates: start: 201602
  2. RITUXIMAB. [Suspect]
     Active Substance: RITUXIMAB
     Indication: HAEMOLYTIC ANAEMIA
     Dosage: UNK
     Route: 065

REACTIONS (4)
  - Acute myeloid leukaemia [Fatal]
  - Pancytopenia [Unknown]
  - Bone marrow failure [Unknown]
  - Infection [Unknown]
